FAERS Safety Report 10020659 (Version 1)
Quarter: 2013Q4

REPORT INFORMATION
  Report Type: Spontaneous
  Country: DE (occurrence: None)
  Receive Date: 20131122
  Receipt Date: 20131122
  Transmission Date: 20140711
  Serious: Yes (Hospitalization)
  Sender: FDA-Public Use
  Company Number: ENTC2013-0386

PATIENT
  Age: 67 Year
  Sex: Male
  Weight: 62 kg

DRUGS (4)
  1. STAVELO (LEVODOPA,CARBIDOPA, ENTACAPONE) [Suspect]
     Indication: PARKINSON^S DISEASE
     Dosage: 0-0-0-1 STRENGTH
     Dates: start: 201304, end: 201306
  2. MADOPAR LP [Concomitant]
  3. LEVOCOMP RETARD [Concomitant]
  4. REQUIP MODUTAB [Concomitant]

REACTIONS (5)
  - Drug-induced liver injury [None]
  - Toxicity to various agents [None]
  - Pleural effusion [None]
  - Chronic hepatitis [None]
  - Cholestasis [None]
